FAERS Safety Report 9087774 (Version 4)
Quarter: 2014Q1

REPORT INFORMATION
  Report Type: Spontaneous
  Country: US (occurrence: US)
  Receive Date: 20130201
  Receipt Date: 20140321
  Transmission Date: 20141002
  Serious: Yes (Life-Threatening, Hospitalization)
  Sender: FDA-Public Use
  Company Number: US-B.I. PHARMACEUTICALS,INC./RIDGEFIELD-2013-BI-02259BP

PATIENT
  Sex: Female
  Weight: 102.06 kg

DRUGS (15)
  1. PRADAXA [Suspect]
     Indication: CEREBROVASCULAR ACCIDENT PROPHYLAXIS
     Dosage: 300 MG
     Route: 065
     Dates: start: 20101112, end: 20110426
  2. PRADAXA [Suspect]
     Indication: THROMBOSIS PROPHYLAXIS
  3. PRADAXA [Suspect]
     Indication: ATRIAL FIBRILLATION
  4. CLONAZEPAM [Concomitant]
     Route: 065
     Dates: start: 2003
  5. GLIPIZIDE [Concomitant]
     Route: 065
     Dates: start: 2003
  6. ALLEGRA [Concomitant]
     Route: 065
     Dates: start: 2003, end: 2012
  7. ALLOPURINOL [Concomitant]
     Route: 065
     Dates: start: 2003
  8. ATENOLOL [Concomitant]
     Route: 065
     Dates: start: 2003, end: 2012
  9. BONIVA [Concomitant]
     Route: 065
     Dates: start: 2003, end: 2012
  10. CRESTOR [Concomitant]
     Route: 065
     Dates: start: 2003
  11. NORCO [Concomitant]
     Route: 065
     Dates: start: 2003
  12. LISINOPRIL [Concomitant]
     Route: 065
     Dates: start: 2003
  13. NEURONTIN [Concomitant]
     Route: 065
     Dates: start: 2003
  14. NEXIUM [Concomitant]
     Route: 065
     Dates: start: 2003
  15. SYNTHROID [Concomitant]
     Route: 065
     Dates: start: 2003

REACTIONS (2)
  - Gastrointestinal haemorrhage [Unknown]
  - Haemorrhagic anaemia [Unknown]
